FAERS Safety Report 8589469-9 (Version None)
Quarter: 2012Q3

REPORT INFORMATION
  Report Type: 
  Country: None (occurrence: None)
  Receive Date: 20120731
  Receipt Date: 20120718
  Transmission Date: 20120928
  Serious: Yes (Other)
  Sender: FDA-Public Use
  Company Number: AUR-APL-2012-03199

PATIENT
  Age: 47 Year
  Sex: Male
  Weight: 72 kg

DRUGS (5)
  1. LISINOPRIL [Suspect]
     Indication: HYPERTENSION
     Dosage: 20 MG, (DAILY)
     Dates: start: 20100101, end: 20110101
  2. METOPROLOL TARTRATE [Suspect]
     Indication: HYPERTENSION
     Dosage: 100 MG (50 MG, 2 IN 1 D)
     Dates: start: 20100101, end: 20110101
  3. PLAVIX [Suspect]
     Indication: ANTIPLATELET THERAPY
     Dosage: 75 MG, DAILY
     Dates: start: 20100101, end: 20110101
  4. ASPIRIN [Suspect]
     Indication: ANTICOAGULANT THERAPY
     Dosage: 81 MG, DAILY, ORAL
     Route: 048
     Dates: start: 20100101
  5. LIPITOR [Suspect]
     Indication: LOW DENSITY LIPOPROTEIN ABNORMAL
     Dosage: (DAILY), ORAL
     Route: 048
     Dates: start: 20100101, end: 20110101

REACTIONS (9)
  - INTRACARDIAC THROMBUS [None]
  - PALPITATIONS [None]
  - MENTAL DISORDER [None]
  - MYOCARDIAL INFARCTION [None]
  - EMOTIONAL DISORDER [None]
  - THROMBOSIS [None]
  - INCORRECT DOSE ADMINISTERED [None]
  - GENERAL PHYSICAL HEALTH DETERIORATION [None]
  - NIGHTMARE [None]
